FAERS Safety Report 7136774-9 (Version None)
Quarter: 2010Q4

REPORT INFORMATION
  Report Type: 
  Country: None (occurrence: None)
  Receive Date: 20101119
  Receipt Date: 20101111
  Transmission Date: 20110411
  Serious: Yes (Other)
  Sender: FDA-Public Use
  Company Number: 2010EU005740

PATIENT
  Age: 3 Year
  Sex: Male

DRUGS (3)
  1. PROTOPIC [Suspect]
     Indication: ECZEMA
     Dosage: 0.03 %, PRN, TOPICAL
     Route: 061
     Dates: start: 20100731
  2. AQUEOUS (EMULSIFYING WAX, PARAFFIN, LIQUID) [Concomitant]
  3. DOUBLEBASE (ISOPROPYL MYRISTATE, PARAFFIN, LIQUID) [Concomitant]

REACTIONS (2)
  - HYPERSENSITIVITY [None]
  - LIP SWELLING [None]
